FAERS Safety Report 16196477 (Version 1)
Quarter: 2019Q2

REPORT INFORMATION
  Report Type: Spontaneous
  Country: US (occurrence: US)
  Receive Date: 20190412
  Receipt Date: 20190412
  Transmission Date: 20190711
  Serious: No
  Sender: FDA-Public Use
  Company Number: None

PATIENT
  Age: 56 Year
  Sex: Female
  Weight: 78.75 kg

DRUGS (1)
  1. COLGATE TOTAL SF WHITENING [Suspect]
     Active Substance: STANNOUS FLUORIDE
     Indication: DENTAL DISORDER PROPHYLAXIS
     Dosage: ?          OTHER ROUTE:BRUSH ON TEETH AND RINSE?
     Dates: start: 20190408, end: 20190412

REACTIONS (4)
  - Dysgeusia [None]
  - Oral mucosal exfoliation [None]
  - Lip blister [None]
  - Paraesthesia oral [None]

NARRATIVE: CASE EVENT DATE: 20190411
